FAERS Safety Report 7138910-7 (Version None)
Quarter: 2010Q4

REPORT INFORMATION
  Report Type: 
  Country: None (occurrence: None)
  Receive Date: 20101202
  Receipt Date: 20101202
  Transmission Date: 20110411
  Serious: Yes (Other)
  Sender: FDA-Public Use
  Company Number: None

PATIENT
  Age: 27 Year
  Sex: Female
  Weight: 88.4514 kg

DRUGS (1)
  1. MIRENA [Suspect]

REACTIONS (3)
  - MUSCLE SPASMS [None]
  - RASH GENERALISED [None]
  - SWOLLEN TONGUE [None]
